FAERS Safety Report 18963998 (Version 1)
Quarter: 2021Q1

REPORT INFORMATION
  Report Type: Spontaneous
  Country: US (occurrence: US)
  Receive Date: 20210303
  Receipt Date: 20210303
  Transmission Date: 20210420
  Serious: No
  Sender: FDA-Public Use
  Company Number: US-AMNEAL PHARMACEUTICALS-2020-AMRX-00499

PATIENT
  Age: 60 Year
  Sex: Male

DRUGS (3)
  1. RYTARY [Suspect]
     Active Substance: CARBIDOPA\LEVODOPA
     Indication: PARKINSON^S DISEASE
     Dosage: UNK
     Route: 065
     Dates: start: 20200116, end: 202002
  2. RYTARY [Suspect]
     Active Substance: CARBIDOPA\LEVODOPA
     Dosage: 2 CAPSULES, EVERY 4HR
     Route: 065
     Dates: start: 20200215
  3. RYTARY [Suspect]
     Active Substance: CARBIDOPA\LEVODOPA
     Dosage: 3 CAPSULES, 5 /DAY (EVERY 4HR,)
     Route: 065
     Dates: start: 202002, end: 202002

REACTIONS (3)
  - Hallucination [Recovering/Resolving]
  - Delusion [Unknown]
  - Prescribed overdose [Unknown]

NARRATIVE: CASE EVENT DATE: 202001
